FAERS Safety Report 6594403-7 (Version None)
Quarter: 2010Q1

REPORT INFORMATION
  Report Type: 
  Country: None (occurrence: None)
  Receive Date: 20100222
  Receipt Date: 20100215
  Transmission Date: 20100710
  Serious: Yes (Hospitalization)
  Sender: FDA-Public Use
  Company Number: B0623854A

PATIENT
  Sex: Female
  Weight: 47 kg

DRUGS (2)
  1. TYKERB [Suspect]
     Indication: BREAST CANCER
     Dosage: 1250MG PER DAY
     Route: 048
     Dates: start: 20091226, end: 20100103
  2. XELODA [Suspect]
     Indication: DRUG USE FOR UNKNOWN INDICATION
     Dosage: 2200MG PER DAY
     Route: 048
     Dates: start: 20091226, end: 20100103

REACTIONS (6)
  - ACNE [None]
  - DIARRHOEA [None]
  - PAIN [None]
  - RASH [None]
  - SKIN DISORDER [None]
  - VOMITING [None]
